FAERS Safety Report 9339167 (Version 1)
Quarter: 2013Q2

REPORT INFORMATION
  Report Type: Spontaneous
  Country: US (occurrence: US)
  Receive Date: 20130610
  Receipt Date: 20130610
  Transmission Date: 20140414
  Serious: Yes (Death)
  Sender: FDA-Public Use
  Company Number: US-TEVA-410585USA

PATIENT
  Age: 64 Year
  Sex: Female
  Weight: 102.15 kg

DRUGS (7)
  1. PROAIR HFA [Suspect]
     Indication: CHRONIC OBSTRUCTIVE PULMONARY DISEASE
     Dosage: 2 PUFFS 4 TIMES/DAY
  2. COUMADIN [Concomitant]
     Indication: ANTICOAGULANT THERAPY
     Dosage: 10 MILLIGRAM DAILY;
     Route: 048
  3. ISOSORBIDE [Concomitant]
     Indication: CARDIAC FAILURE CONGESTIVE
     Dosage: 30 MILLIGRAM DAILY;
     Route: 048
  4. LASIX [Concomitant]
     Indication: CARDIAC FAILURE CONGESTIVE
     Dosage: 40 MILLIGRAM DAILY;
     Route: 048
  5. LASIX [Concomitant]
     Indication: HYPERTENSION
  6. METOPROLOL [Concomitant]
     Indication: HYPERTENSION
     Dosage: 25 MILLIGRAM DAILY;
     Route: 048
  7. POTASSIUM [Concomitant]
     Dosage: 20 MILLIEQUIVALENTS DAILY;
     Route: 048

REACTIONS (1)
  - Death [Fatal]
